FAERS Safety Report 9625577 (Version 1)
Quarter: 2013Q4

REPORT INFORMATION
  Report Type: Spontaneous
  Country: DE (occurrence: DE)
  Receive Date: 20131016
  Receipt Date: 20131016
  Transmission Date: 20140711
  Serious: Yes (Other)
  Sender: FDA-Public Use
  Company Number: DE-ASTRAZENECA-2013SE74811

PATIENT
  Age: 40 Year
  Sex: Female
  Weight: 69.5 kg

DRUGS (6)
  1. METOPROLOL [Suspect]
     Indication: PRE-ECLAMPSIA
     Dosage: 35.-37.2 GESTATIONAL WEEK
     Route: 048
  2. SEROQUEL [Suspect]
     Indication: BIPOLAR DISORDER
     Route: 048
  3. SEROQUEL [Suspect]
     Indication: BIPOLAR DISORDER
     Route: 048
  4. VALPROIC ACID [Suspect]
     Indication: BIPOLAR DISORDER
     Route: 048
  5. VALPROIC ACID [Suspect]
     Indication: BIPOLAR DISORDER
     Dosage: 0.- 6. GESTATIONAL WEEK
     Route: 048
     Dates: start: 20080623
  6. FOLIC ACID [Concomitant]
     Indication: PROPHYLAXIS OF NEURAL TUBE DEFECT
     Dosage: 5.4.-23.1. GESTATIONAL WEEK; 5 MG DAILY
     Route: 048
     Dates: start: 20080726, end: 20081126

REACTIONS (4)
  - Exposure during pregnancy [Unknown]
  - Pre-eclampsia [Unknown]
  - Gestational diabetes [Unknown]
  - Therapy cessation [Unknown]
